FAERS Safety Report 8130215-0 (Version None)
Quarter: 2012Q1

REPORT INFORMATION
  Report Type: 
  Country: None (occurrence: None)
  Receive Date: 20120210
  Receipt Date: 20120127
  Transmission Date: 20120608
  Serious: Yes (Hospitalization, Disabling)
  Sender: FDA-Public Use
  Company Number: PHHY2011FR111055

PATIENT
  Sex: Female
  Weight: 60.8 kg

DRUGS (12)
  1. ONBREZ [Suspect]
     Indication: DYSPNOEA
  2. SYMBICORT [Concomitant]
     Dosage: 2 DF, BID
     Dates: start: 20111212
  3. SYMBICORT [Concomitant]
     Dosage: 1 DF, BID
     Dates: start: 20111212
  4. ASPIRIN [Concomitant]
     Dosage: 1 DF, QD
     Route: 048
  5. VITAMIN D [Concomitant]
     Dosage: UNK
  6. ZOLPIDEM [Concomitant]
     Dosage: 1 DF, QD
     Route: 048
  7. CALCIUM [Concomitant]
     Dosage: UNK
  8. ONBREZ [Suspect]
     Indication: ASTHMA
     Dosage: 150 MG, QD
     Route: 048
     Dates: start: 20111207, end: 20111218
  9. ONBREZ [Suspect]
     Indication: COUGH
     Dosage: 1 DF, QD
     Dates: start: 20111207, end: 20111218
  10. SYMBICORT [Concomitant]
     Dosage: 200 UG, BID
  11. CRESTOR [Concomitant]
     Dosage: 10 MG, QD
  12. CALCIUM CARBONATE [Concomitant]
     Dosage: 1 DF, BID
     Route: 048

REACTIONS (9)
  - ATRIAL FIBRILLATION [None]
  - HEART RATE INCREASED [None]
  - AORTIC ARTERIOSCLEROSIS [None]
  - SPEECH DISORDER [None]
  - APHASIA [None]
  - CEREBROVASCULAR ACCIDENT [None]
  - HEMIPARESIS [None]
  - ARTERIAL RUPTURE [None]
  - BRACHIAL PULSE ABNORMAL [None]
